FAERS Safety Report 6307795-0 (Version None)
Quarter: 2009Q3

REPORT INFORMATION
  Report Type: 
  Country: None (occurrence: None)
  Receive Date: 20090813
  Receipt Date: 20090508
  Transmission Date: 20100115
  Serious: No
  Sender: FDA-Public Use
  Company Number: US-BAYER-200920569NA

PATIENT
  Age: 35 Year
  Sex: Female
  Weight: 61 kg

DRUGS (1)
  1. YAZ [Suspect]
     Indication: CONTRACEPTION
     Route: 048
     Dates: start: 20070101, end: 20090427

REACTIONS (6)
  - AMENORRHOEA [None]
  - DIZZINESS [None]
  - METRORRHAGIA [None]
  - NAUSEA [None]
  - TREMOR [None]
  - WEIGHT INCREASED [None]
